FAERS Safety Report 19878930 (Version 1)
Quarter: 2021Q3

REPORT INFORMATION
  Report Type: Spontaneous
  Country: DE (occurrence: DE)
  Receive Date: 20210923
  Receipt Date: 20210923
  Transmission Date: 20211014
  Serious: Yes (Hospitalization, Other)
  Sender: FDA-Public Use
  Company Number: NVSC2021DE214137

PATIENT
  Age: 16 Year
  Sex: Female

DRUGS (14)
  1. SIMVASTATIN. [Concomitant]
     Active Substance: SIMVASTATIN
     Indication: HEART TRANSPLANT
     Dosage: 10 MG, UNKNOWN
     Route: 065
  2. POTASSIUM IODIDE. [Concomitant]
     Active Substance: POTASSIUM IODIDE
     Indication: HEART TRANSPLANT
     Dosage: 200 UG, UNKNOWN
     Route: 065
  3. SODIUM BICARBONATE. [Concomitant]
     Active Substance: SODIUM BICARBONATE
     Indication: IMMUNOSUPPRESSANT DRUG THERAPY
  4. FERROUS GLYCINE SULFATE [Concomitant]
     Active Substance: FERROUS GLYCINE SULFATE
     Indication: HEART TRANSPLANT
     Dosage: 50 MG EVERY OTHER DAY
     Route: 065
  5. FERROUS GLYCINE SULFATE [Concomitant]
     Active Substance: FERROUS GLYCINE SULFATE
     Indication: IMMUNOSUPPRESSANT DRUG THERAPY
  6. CHOLECALCIFEROL [Concomitant]
     Active Substance: CHOLECALCIFEROL
     Indication: HEART TRANSPLANT
     Dosage: 1000 IE
     Route: 065
  7. EVEROLIMUS. [Suspect]
     Active Substance: EVEROLIMUS
     Indication: HEART TRANSPLANT
     Dosage: 10.75 MG, QD
     Route: 065
  8. POTASSIUM IODIDE. [Concomitant]
     Active Substance: POTASSIUM IODIDE
     Indication: IMMUNOSUPPRESSANT DRUG THERAPY
  9. LISINOPRIL. [Suspect]
     Active Substance: LISINOPRIL
     Indication: HEART TRANSPLANT
     Dosage: 5 MG, UNKNOWN
     Route: 065
  10. SIMVASTATIN. [Concomitant]
     Active Substance: SIMVASTATIN
     Indication: IMMUNOSUPPRESSANT DRUG THERAPY
  11. SODIUM BICARBONATE. [Concomitant]
     Active Substance: SODIUM BICARBONATE
     Indication: HEART TRANSPLANT
     Dosage: 1 G, UNKNOWN
     Route: 065
  12. EVEROLIMUS. [Suspect]
     Active Substance: EVEROLIMUS
     Indication: IMMUNOSUPPRESSANT DRUG THERAPY
  13. LISINOPRIL. [Suspect]
     Active Substance: LISINOPRIL
     Indication: IMMUNOSUPPRESSANT DRUG THERAPY
  14. CHOLECALCIFEROL [Concomitant]
     Active Substance: CHOLECALCIFEROL
     Indication: IMMUNOSUPPRESSANT DRUG THERAPY

REACTIONS (2)
  - Angioedema [Recovered/Resolved]
  - Product use in unapproved indication [Unknown]
